FAERS Safety Report 9173413 (Version 1)
Quarter: 2013Q1

REPORT INFORMATION
  Report Type: Spontaneous
  Country: US (occurrence: US)
  Receive Date: 20130320
  Receipt Date: 20130320
  Transmission Date: 20140127
  Serious: No
  Sender: FDA-Public Use
  Company Number: US-BAYER-2013-034642

PATIENT
  Age: 88 Year
  Sex: Female
  Weight: 57 kg

DRUGS (10)
  1. ALEVE CAPLET/TABLET,MIDOL EXTENDED RELIEF CAPLET [Suspect]
     Dosage: BOTTLE COUNT 320S, 0.5 DF, BID
     Route: 048
     Dates: start: 201303
  2. OXYGEN [Concomitant]
  3. ACID REFLUX PILL [Concomitant]
  4. ECOTRIN [Concomitant]
  5. DULCOLAX [Concomitant]
  6. HEART MEDICATION [Concomitant]
  7. POTASSIUM [Concomitant]
  8. SENNA [Concomitant]
  9. VITAMIN D [Concomitant]
  10. ANXIETY PILL [Concomitant]

REACTIONS (2)
  - Abdominal pain upper [None]
  - Incorrect drug administration duration [Recovered/Resolved]
